FAERS Safety Report 7414973-6 (Version None)
Quarter: 2011Q2

REPORT INFORMATION
  Report Type: 
  Country: None (occurrence: None)
  Receive Date: 20110414
  Receipt Date: 20110322
  Transmission Date: 20111010
  Serious: Yes (Hospitalization, Other)
  Sender: FDA-Public Use
  Company Number: US-BAYER-201012533NA

PATIENT
  Age: 60 Year
  Sex: Female

DRUGS (32)
  1. ASCORBIC ACID [Concomitant]
  2. PRILOSEC [Concomitant]
     Indication: GASTROOESOPHAGEAL REFLUX DISEASE
     Dosage: UNK
     Dates: start: 20050609
  3. NIASPAN [Concomitant]
     Indication: BLOOD CHOLESTEROL INCREASED
     Dosage: UNK
     Dates: start: 20030411
  4. POTASSIUM CHLORIDE [Concomitant]
  5. XOPENEX [Concomitant]
  6. VICODIN [Concomitant]
  7. TRIAMTERENE [Concomitant]
     Dosage: UNK
     Dates: start: 20060808, end: 20070808
  8. SYNTHROID [Concomitant]
     Indication: HYPOTHYROIDISM
     Dosage: UNK
     Dates: start: 20050101
  9. BACLOFEN [Concomitant]
     Indication: MUSCLE SPASMS
     Dosage: UNK
     Dates: start: 20060128
  10. LORAZEPAM [Concomitant]
     Indication: ANXIETY
     Dosage: UNK
     Dates: start: 20050817
  11. FISH OIL [Concomitant]
  12. YAZ [Suspect]
     Indication: VAGINAL HAEMORRHAGE
     Dosage: 1 DF (DAILY DOSE), QD, ORAL
     Route: 048
     Dates: start: 20080415, end: 20080508
  13. LISINOPRIL [Concomitant]
     Dosage: UNK
     Dates: start: 20031110
  14. METOPROLOL TARTRATE [Concomitant]
     Indication: HYPERTENSION
     Dosage: UNK
     Dates: start: 20040101
  15. CEPHALEXIN [Concomitant]
     Dosage: UNK
     Dates: start: 20030618
  16. OMEPRAZOLE [Concomitant]
     Indication: GASTROOESOPHAGEAL REFLUX DISEASE
     Dosage: UNK
     Dates: start: 20060101
  17. ASPIRIN [Concomitant]
  18. NEUTRA-PHOS [Concomitant]
  19. AMBIEN [Concomitant]
  20. IBUPROFEN [Concomitant]
     Dosage: UNK
     Dates: start: 20040101
  21. LOVASTATIN [Concomitant]
     Indication: BLOOD CHOLESTEROL INCREASED
  22. LORAZEPAM [Concomitant]
     Dosage: UNK
     Dates: start: 20060323
  23. NEURONTIN [Concomitant]
     Indication: NEUROPATHY PERIPHERAL
     Dosage: UNK
     Dates: start: 20030101
  24. CIPROFLOXACIN [Concomitant]
     Dosage: UNK
     Dates: start: 20050224
  25. NEXIUM [Concomitant]
  26. MAGNESIUM OXIDE [Concomitant]
  27. GABAPENTIN [Concomitant]
     Indication: NEUROPATHY PERIPHERAL
     Dosage: UNK
     Dates: start: 20040421
  28. AMPICILLIN [Concomitant]
     Dosage: UNK
     Dates: start: 20060725
  29. ATROVENT [Concomitant]
  30. AMITRIPTYLINE [Concomitant]
     Indication: ANTIDEPRESSANT THERAPY
     Dosage: UNK
     Dates: start: 20050609
  31. ALPRAZOLAM [Concomitant]
     Indication: ANXIETY
     Dosage: UNK
     Dates: start: 20030723
  32. MEDROXYPROGESTERONE [Concomitant]

REACTIONS (7)
  - DEEP VEIN THROMBOSIS [None]
  - CARDIAC ARREST [None]
  - MOTOR DYSFUNCTION [None]
  - CEREBROVASCULAR ACCIDENT [None]
  - RESPIRATORY FAILURE [None]
  - PULMONARY EMBOLISM [None]
  - INJURY [None]
